FAERS Safety Report 25208207 (Version 1)
Quarter: 2025Q2

REPORT INFORMATION
  Report Type: Spontaneous
  Country: US (occurrence: None)
  Receive Date: 20250416
  Receipt Date: 20250416
  Transmission Date: 20250716
  Serious: No
  Sender: FDA-CTU
  Company Number: None

PATIENT

DRUGS (1)
  1. AMANTADINE [Suspect]
     Active Substance: AMANTADINE

REACTIONS (6)
  - Rash [None]
  - Skin discolouration [None]
  - Dry mouth [None]
  - Hyperhidrosis [None]
  - Fatigue [None]
  - Feeling abnormal [None]
